FAERS Safety Report 9914103 (Version 3)
Quarter: 2014Q1

REPORT INFORMATION
  Report Type: Spontaneous
  Country: JP (occurrence: JP)
  Receive Date: 20140220
  Receipt Date: 20140310
  Transmission Date: 20141002
  Serious: Yes (Life-Threatening, Hospitalization, Other)
  Sender: FDA-Public Use
  Company Number: JP-PFIZER INC-2014043696

PATIENT
  Age: 45 Year
  Sex: Female
  Weight: 70 kg

DRUGS (16)
  1. LYRICA [Suspect]
     Indication: NEURALGIA
     Dosage: 75 MG, 2X/DAY
     Route: 048
  2. LYRICA [Suspect]
     Dosage: 25 MG, 2X/DAY
     Route: 048
  3. LYRICA [Suspect]
     Dosage: 100 MG, 2X/DAY
     Route: 048
  4. MAINTATE [Suspect]
     Indication: HYPERTENSION
     Dosage: 2.5 MG, 1X/DAY
     Route: 048
  5. ADALAT [Suspect]
     Indication: HYPERTENSION
     Dosage: 40 MG, 2X/DAY
     Route: 048
  6. AZILVA [Suspect]
     Indication: HYPERTENSION
     Dosage: 40 MG, 1X/DAY
     Route: 048
  7. PARIET [Concomitant]
     Indication: ABDOMINAL PAIN UPPER
     Dosage: 10 MG, 1X/DAY
     Route: 048
  8. SHAKANZOUTOU [Concomitant]
     Indication: TENSION HEADACHE
     Dosage: 7.5 G, 3X/DAY
     Route: 048
  9. TERNELIN [Concomitant]
     Indication: TENSION HEADACHE
     Dosage: 1 MG, 3X/DAY
     Route: 048
  10. PREDNISOLONE [Concomitant]
     Indication: PAIN
     Dosage: 1 MG, 1X/DAY
     Route: 048
  11. CRESTOR [Concomitant]
     Indication: DIABETES MELLITUS
     Dosage: 5 MG, 1X/DAY
     Route: 048
  12. GLACTIV [Concomitant]
     Indication: DIABETES MELLITUS
     Dosage: 100 MG, 1X/DAY
     Route: 048
  13. DEPAS [Concomitant]
     Indication: TENSION HEADACHE
     Dosage: 0.5 MG, 2X/DAY
     Route: 048
  14. LOXONIN [Concomitant]
     Indication: TENSION HEADACHE
     Dosage: 3 DF, DAILY
     Route: 048
  15. MAXALT [Concomitant]
     Indication: MIGRAINE
     Dosage: 10 MG, AS NEEDED
     Route: 048
  16. HALCION [Concomitant]
     Indication: INSOMNIA
     Dosage: 0.25 MG, 1X/DAY
     Route: 048

REACTIONS (13)
  - Atrioventricular block complete [Recovered/Resolved]
  - Electrocardiogram ST segment elevation [Recovered/Resolved]
  - Prinzmetal angina [Recovered/Resolved]
  - Chest pain [Recovered/Resolved]
  - Altered state of consciousness [Recovered/Resolved]
  - Fall [Unknown]
  - Gait disturbance [Unknown]
  - Cold sweat [Unknown]
  - Speech disorder [Unknown]
  - Dyspnoea [Unknown]
  - Faecal incontinence [Unknown]
  - Blood pressure decreased [Recovering/Resolving]
  - Body temperature decreased [Unknown]
